FAERS Safety Report 7889108-6 (Version None)
Quarter: 2011Q4

REPORT INFORMATION
  Report Type: 
  Country: None (occurrence: None)
  Receive Date: 20111103
  Receipt Date: 20111101
  Transmission Date: 20120403
  Serious: Yes (Hospitalization)
  Sender: FDA-Public Use
  Company Number: US-BRISTOL-MYERS SQUIBB COMPANY-16209884

PATIENT
  Age: 70 Year
  Sex: Female

DRUGS (6)
  1. CARBOPLATIN [Suspect]
     Indication: NON-SMALL CELL LUNG CANCER
     Dosage: 1DF=AUC=6 ON DAY 1 OF 3 WEEK CYCLE
  2. PEMETREXED DISODIUM [Suspect]
     Indication: NON-SMALL CELL LUNG CANCER
     Dosage: ON DAY 1 OF 3 WEEK CYCLE
     Route: 042
  3. DEXAMETHASONE [Concomitant]
  4. CYANOCOBALAMIN [Concomitant]
  5. RAMUCIRUMAB [Suspect]
     Indication: NON-SMALL CELL LUNG CANCER
     Dosage: ON DAY 1 OF 3 WEEK CYCLE
     Route: 042
  6. FOLIC ACID [Concomitant]

REACTIONS (2)
  - ASTHENIA [None]
  - FALL [None]
